FAERS Safety Report 13624609 (Version 1)
Quarter: 2017Q2

REPORT INFORMATION
  Report Type: Spontaneous
  Country: US (occurrence: US)
  Receive Date: 20170607
  Receipt Date: 20170607
  Transmission Date: 20170830
  Serious: No
  Sender: FDA-Public Use
  Company Number: US-PURDUE-USA-2017-0136030

PATIENT
  Age: 52 Year
  Sex: Female

DRUGS (4)
  1. BUTRANS [Suspect]
     Active Substance: BUPRENORPHINE
     Dosage: 2 X 10 MCG/HR, WEEKLY
     Route: 062
     Dates: start: 201611
  2. BUTRANS [Suspect]
     Active Substance: BUPRENORPHINE
     Indication: PRODUCT USED FOR UNKNOWN INDICATION
     Dosage: 10 MCG/HR EVERY 72 HOURS
     Route: 062
  3. BUTRANS [Suspect]
     Active Substance: BUPRENORPHINE
     Dosage: 10 MCG/HR, EVERY 5 DAYS
     Route: 062
     Dates: start: 201606, end: 201610
  4. BUTRANS [Suspect]
     Active Substance: BUPRENORPHINE
     Dosage: 2 X 5 MCG, WEEKLY
     Route: 062
     Dates: start: 201605

REACTIONS (1)
  - Inappropriate schedule of drug administration [Unknown]
